FAERS Safety Report 10018898 (Version 1)
Quarter: 2014Q1

REPORT INFORMATION
  Report Type: Spontaneous
  Country: FR (occurrence: None)
  Receive Date: 20140312
  Receipt Date: 20140312
  Transmission Date: 20141002
  Serious: Yes (Hospitalization)
  Sender: FDA-Public Use
  Company Number: FK201400771

PATIENT
  Age: 59 Year
  Sex: Female

DRUGS (1)
  1. OXALIPLATIN [Suspect]
     Indication: ADENOCARCINOMA OF COLON

REACTIONS (4)
  - Histiocytosis haematophagic [None]
  - Multi-organ failure [None]
  - Acute respiratory distress syndrome [None]
  - Pulmonary alveolar haemorrhage [None]
